FAERS Safety Report 10071591 (Version 1)
Quarter: 2014Q2

REPORT INFORMATION
  Report Type: Spontaneous
  Country: US (occurrence: US)
  Receive Date: 20140410
  Receipt Date: 20140410
  Transmission Date: 20141212
  Serious: No
  Sender: FDA-Public Use
  Company Number: US-009507513-1404USA005686

PATIENT
  Sex: Female

DRUGS (2)
  1. JANUMET XR [Suspect]
     Indication: DIABETES MELLITUS
     Dosage: 50/1000 MG, ONCE DAILY
     Route: 048
  2. JANUMET XR [Suspect]
     Dosage: 50/1000 MG TWICE DAILY
     Route: 048

REACTIONS (4)
  - Blood glucose increased [Recovered/Resolved]
  - Dry mouth [Unknown]
  - Rhinorrhoea [Unknown]
  - Inappropriate schedule of drug administration [Unknown]
